FAERS Safety Report 16686972 (Version 1)
Quarter: 2019Q3

REPORT INFORMATION
  Report Type: Spontaneous
  Country: ES (occurrence: ES)
  Receive Date: 20190809
  Receipt Date: 20190809
  Transmission Date: 20191004
  Serious: Yes (Other)
  Sender: FDA-Public Use
  Company Number: ES-ACCORD-150973

PATIENT
  Age: 66 Year
  Sex: Female

DRUGS (4)
  1. MYCOPHENOLATE MOFETIL. [Suspect]
     Active Substance: MYCOPHENOLATE MOFETIL
     Indication: NEPHROPATHY
  2. PREDNISONE. [Suspect]
     Active Substance: PREDNISONE
     Indication: NEPHROPATHY
  3. MYCOPHENOLIC ACID. [Suspect]
     Active Substance: MYCOPHENOLIC ACID
     Indication: NEPHROPATHY
  4. PREDNISONE. [Suspect]
     Active Substance: PREDNISONE
     Indication: NEPHROPATHY
     Dosage: PULSE

REACTIONS (1)
  - Kaposi^s sarcoma [Recovered/Resolved]
